FAERS Safety Report 8205676-9 (Version None)
Quarter: 2012Q1

REPORT INFORMATION
  Report Type: 
  Country: None (occurrence: None)
  Receive Date: 20120313
  Receipt Date: 20120307
  Transmission Date: 20120608
  Serious: Yes (Hospitalization)
  Sender: FDA-Public Use
  Company Number: US-PFIZER INC-2009187922

PATIENT
  Sex: Female
  Weight: 89.4 kg

DRUGS (20)
  1. ABILIFY [Suspect]
     Indication: BIPOLAR I DISORDER
     Dosage: 15 MG, 2X/DAY
     Route: 048
  2. BLINDED DESVENLAFAXINE SUCCINATE MONOHYDRATE [Suspect]
     Dosage: BLINDED THERAPY DAILY
     Route: 048
     Dates: start: 20081129, end: 20081224
  3. LEXAPRO [Suspect]
     Indication: POST-TRAUMATIC STRESS DISORDER
     Dosage: 20 MG, 1X/DAY
     Route: 048
  4. FLUTICASONE [Suspect]
     Indication: SEASONAL ALLERGY
     Dosage: 2 SPRAYS DAILY ROUTE: IN
  5. BLINDED PLACEBO [Suspect]
     Dosage: BLINDED THERAPY DAILY
     Route: 048
     Dates: start: 20081129, end: 20081224
  6. LYRICA [Suspect]
     Indication: FIBROMYALGIA
     Dosage: 75 MG, 1X/DAY
     Route: 048
  7. ROBAXIN [Suspect]
     Indication: FIBROMYALGIA
     Dosage: 750 MG, 3X/DAY
     Route: 048
  8. CLONAZEPAM [Suspect]
     Indication: BIPOLAR DISORDER
     Dosage: 1 MG, 2X/DAY
     Route: 048
  9. VICODIN [Suspect]
     Indication: FIBROMYALGIA
     Dosage: 5/500 PRN
     Route: 048
  10. BLINDED PLACEBO [Suspect]
     Indication: MENOPAUSAL SYMPTOMS
     Dosage: BLINDED THERAPY DAILY
     Route: 048
     Dates: start: 20080909, end: 20081122
  11. LORATADINE [Suspect]
     Indication: SEASONAL ALLERGY
     Dosage: 10 MG, 1X/DAY
     Route: 048
  12. ROBAXIN [Suspect]
     Dosage: UNKNOWN
  13. LEXAPRO [Suspect]
     Indication: BIPOLAR DISORDER
  14. VIVELLE [Suspect]
     Indication: HORMONE REPLACEMENT THERAPY
     Dosage: 0.1 MG, UNK
     Route: 062
  15. IBUPROFEN [Suspect]
     Indication: FIBROMYALGIA
     Dosage: 800 MG, 3X/DAY
     Route: 048
  16. AMBIEN [Suspect]
     Indication: INSOMNIA
     Dosage: 10 MG, 1X/DAY
     Route: 048
  17. BLINDED DESVENLAFAXINE SUCCINATE MONOHYDRATE [Suspect]
     Indication: MENOPAUSAL SYMPTOMS
     Dosage: BLINDED THERAPY DAILY
     Route: 048
     Dates: start: 20080909, end: 20081122
  18. BLINDED NO SUBJECT DRUG [Suspect]
     Indication: MENOPAUSAL SYMPTOMS
     Dosage: BLINDED THERAPY DAILY
     Route: 048
     Dates: start: 20080909, end: 20081122
  19. ZESTORETIC [Suspect]
     Indication: HYPERTENSION
     Dosage: 20/12.5 DAILY
     Route: 048
     Dates: start: 20081204
  20. BLINDED NO SUBJECT DRUG [Suspect]
     Dosage: BLINDED THERAPY DAILY
     Route: 048
     Dates: start: 20081129, end: 20081224

REACTIONS (6)
  - MENTAL STATUS CHANGES [None]
  - HYPOKALAEMIA [None]
  - CONDITION AGGRAVATED [None]
  - DYSARTHRIA [None]
  - HYPERTENSION [None]
  - POLYMEDICATION [None]
